FAERS Safety Report 8330971-2 (Version None)
Quarter: 2012Q2

REPORT INFORMATION
  Report Type: 
  Country: None (occurrence: None)
  Receive Date: 20120502
  Receipt Date: 20120404
  Transmission Date: 20120825
  Serious: No
  Sender: FDA-Public Use
  Company Number: US-AMGEN-USASP2011031967

PATIENT
  Age: 47 Year
  Sex: Male

DRUGS (1)
  1. ENBREL [Suspect]
     Indication: PSORIATIC ARTHROPATHY
     Dosage: 50 MG, UNK
     Dates: start: 20110526

REACTIONS (5)
  - OEDEMA PERIPHERAL [None]
  - JOINT SWELLING [None]
  - FIBROMYALGIA [None]
  - PAIN [None]
  - ASTHENIA [None]
